FAERS Safety Report 7944597-3 (Version None)
Quarter: 2011Q4

REPORT INFORMATION
  Report Type: 
  Country: None (occurrence: None)
  Receive Date: 20111129
  Receipt Date: 20111117
  Transmission Date: 20120403
  Serious: Yes (Hospitalization, Other)
  Sender: FDA-Public Use
  Company Number: US-JNJFOC-20111108493

PATIENT
  Sex: Male
  Weight: 97.98 kg

DRUGS (1)
  1. ZYTIGA [Suspect]
     Indication: PROSTATE CANCER METASTATIC
     Route: 048
     Dates: start: 20110729, end: 20111117

REACTIONS (5)
  - CONFUSIONAL STATE [None]
  - FLUID RETENTION [None]
  - RENAL FAILURE [None]
  - HEART RATE INCREASED [None]
  - PROSTATIC SPECIFIC ANTIGEN INCREASED [None]
